FAERS Safety Report 8046184-8 (Version None)
Quarter: 2012Q1

REPORT INFORMATION
  Report Type: 
  Country: None (occurrence: None)
  Receive Date: 20120113
  Receipt Date: 20120109
  Transmission Date: 20120608
  Serious: Yes (Life-Threatening, Other)
  Sender: FDA-Public Use
  Company Number: US-US-EMD SERONO, INC.-430122K05USA

PATIENT
  Sex: Male

DRUGS (4)
  1. REBIF [Concomitant]
     Indication: MULTIPLE SCLEROSIS
     Route: 058
     Dates: start: 20031229, end: 20110101
  2. NOVANTRONE [Suspect]
     Indication: MULTIPLE SCLEROSIS
     Route: 065
     Dates: end: 20030101
  3. INSULIN [Concomitant]
     Indication: DIABETES MELLITUS
     Route: 065
  4. REBIF [Concomitant]
     Route: 058
     Dates: start: 20120107

REACTIONS (1)
  - CARDIOMYOPATHY [None]
